FAERS Safety Report 8077276-5 (Version None)
Quarter: 2012Q1

REPORT INFORMATION
  Report Type: 
  Country: None (occurrence: None)
  Receive Date: 20120127
  Receipt Date: 20120119
  Transmission Date: 20120608
  Serious: Yes (Hospitalization, Other)
  Sender: FDA-Public Use
  Company Number: US-ACTELION-A-US2012-59160

PATIENT

DRUGS (3)
  1. SILDENAFIL [Concomitant]
  2. COUMADIN [Concomitant]
  3. EPOPROSTENOL SODIUM [Suspect]
     Indication: PULMONARY ARTERIAL HYPERTENSION
     Dosage: 8 NG/KG, PER MIN
     Route: 042
     Dates: start: 20111012

REACTIONS (8)
  - FLUID RETENTION [None]
  - DIABETES MELLITUS [None]
  - ASTHENIA [None]
  - PULMONARY ARTERIAL HYPERTENSION [None]
  - DYSPNOEA [None]
  - RIGHT VENTRICULAR FAILURE [None]
  - RENAL FAILURE ACUTE [None]
  - HAEMODIALYSIS [None]
